FAERS Safety Report 8208193-5 (Version None)
Quarter: 2012Q1

REPORT INFORMATION
  Report Type: 
  Country: None (occurrence: None)
  Receive Date: 20120314
  Receipt Date: 20120308
  Transmission Date: 20120608
  Serious: Yes (Other)
  Sender: FDA-Public Use
  Company Number: PHEH2012US003096

PATIENT
  Sex: Female

DRUGS (3)
  1. GILENYA [Suspect]
     Indication: RELAPSING-REMITTING MULTIPLE SCLEROSIS
     Dosage: 0.5 MG, QD
     Route: 048
     Dates: start: 20120126
  2. PENICILIN [Concomitant]
     Dosage: UNK UKN, UNK
  3. NEURONTIN [Concomitant]
     Dosage: UNK UKN, UNK

REACTIONS (1)
  - OEDEMA PERIPHERAL [None]
